FAERS Safety Report 25654865 (Version 2)
Quarter: 2025Q3

REPORT INFORMATION
  Report Type: Spontaneous
  Country: US (occurrence: US)
  Receive Date: 20250807
  Receipt Date: 20250808
  Transmission Date: 20251021
  Serious: Yes (Life-Threatening, Hospitalization)
  Sender: PFIZER
  Company Number: US-MLMSERVICE-20250729-PI593303-00072-1

PATIENT
  Age: 52 Year
  Sex: Male
  Weight: 115 kg

DRUGS (8)
  1. BUPIVACAINE HYDROCHLORIDE [Suspect]
     Active Substance: BUPIVACAINE HYDROCHLORIDE
     Indication: Procedural pain
     Route: 008
  2. HYDROMORPHONE [Concomitant]
     Active Substance: HYDROMORPHONE
     Indication: Procedural pain
     Route: 042
  3. OXYCODONE [Concomitant]
     Active Substance: OXYCODONE
     Indication: Procedural pain
     Route: 048
  4. ACETAMINOPHEN [Concomitant]
     Active Substance: ACETAMINOPHEN
     Indication: Procedural pain
     Route: 048
  5. ACETAMINOPHEN [Concomitant]
     Active Substance: ACETAMINOPHEN
     Route: 042
  6. FENTANYL [Concomitant]
     Active Substance: FENTANYL
     Indication: Procedural pain
  7. KETAMINE [Concomitant]
     Active Substance: KETAMINE
     Indication: Procedural pain
  8. BUPIVACAINE [Concomitant]
     Active Substance: BUPIVACAINE
     Indication: Procedural pain
     Route: 008

REACTIONS (2)
  - Orthostatic hypotension [Recovering/Resolving]
  - Off label use [Unknown]
